FAERS Safety Report 25949759 (Version 1)
Quarter: 2025Q4

REPORT INFORMATION
  Report Type: Spontaneous
  Country: CA (occurrence: CA)
  Receive Date: 20251022
  Receipt Date: 20251022
  Transmission Date: 20260118
  Serious: Yes (Death)
  Sender: EISAI
  Company Number: CA-Eisai-EC-2025-198671

PATIENT
  Sex: Female

DRUGS (8)
  1. ERIBULIN [Suspect]
     Active Substance: ERIBULIN
     Indication: Breast cancer metastatic
     Dosage: UNKNOWN DOSE AND FREQUENCY
     Route: 042
  2. AFINITOR [Suspect]
     Active Substance: EVEROLIMUS
     Indication: Breast cancer metastatic
     Dosage: UNKNOWN DOSE AND FREQUENCY
     Route: 048
  3. CARBOPLATIN [Suspect]
     Active Substance: CARBOPLATIN
     Indication: Breast cancer metastatic
     Dosage: UNKNOWN DOSE AND FREQUENCY
  4. FASLODEX [Suspect]
     Active Substance: FULVESTRANT
     Indication: Breast cancer metastatic
     Dosage: UNKNOWN DOSE AND FREQUENCY
     Route: 030
  5. IBRANCE [Suspect]
     Active Substance: PALBOCICLIB
     Indication: Breast cancer metastatic
     Route: 048
  6. PACLITAXEL [Suspect]
     Active Substance: PACLITAXEL
     Indication: Breast cancer metastatic
     Dosage: UNKNOWN DOSE AND FREQUENCY
     Route: 041
  7. XELODA [Suspect]
     Active Substance: CAPECITABINE
     Indication: Breast cancer metastatic
     Dosage: UNKNOWN DOSE AND FREQUENCY
     Route: 048
  8. GEMCITABINE HYDROCHLORIDE [Suspect]
     Active Substance: GEMCITABINE HYDROCHLORIDE
     Indication: Breast cancer metastatic
     Dosage: UNKNOWN DOSE AND FREQUENCY

REACTIONS (1)
  - Malignant neoplasm progression [Fatal]
